FAERS Safety Report 4709083-2 (Version None)
Quarter: 2005Q3

REPORT INFORMATION
  Report Type: 
  Country: None (occurrence: None)
  Receive Date: 20050707
  Receipt Date: 20050707
  Transmission Date: 20060218
  Serious: No
  Sender: FDA-Public Use
  Company Number: None

PATIENT
  Age: 46 Year
  Sex: Female

DRUGS (2)
  1. ADVAIR DISKUS 100/50 [Suspect]
     Indication: ASTHMA
     Dosage: INHALED ONCE DAILY IN THE AM
     Route: 055
  2. LEVOXYL [Concomitant]

REACTIONS (5)
  - CONDITION AGGRAVATED [None]
  - DRUG INEFFECTIVE [None]
  - NO THERAPEUTIC RESPONSE [None]
  - OBSTRUCTIVE AIRWAYS DISORDER [None]
  - PHARMACEUTICAL PRODUCT COMPLAINT [None]
